FAERS Safety Report 8766562 (Version 1)
Quarter: 2012Q4

REPORT INFORMATION
  Report Type: 
  Country: None (occurrence: US)
  Receive Date: 20120904
  Receipt Date: 20120904
  Transmission Date: 20130627
  Serious: Yes (Hospitalization, Other)
  Sender: FDA-Public Use
  Company Number: US-PURDUE-USA-2012-0092179

PATIENT
  Sex: Male

DRUGS (1)
  1. OXYCONTIN (NDA 22-272) [Suspect]
     Indication: DRUG ABUSE

REACTIONS (7)
  - Drug abuse [Unknown]
  - Heart valve replacement [Unknown]
  - Injection site infection [Unknown]
  - Vasculitis [Unknown]
  - Vein disorder [Unknown]
  - Pain in extremity [Unknown]
  - Oedema peripheral [Unknown]
